FAERS Safety Report 11712629 (Version 1)
Quarter: 2015Q4

REPORT INFORMATION
  Report Type: Spontaneous
  Country: US (occurrence: US)
  Receive Date: 20151104
  Receipt Date: 20151104
  Transmission Date: 20160304
  Serious: No
  Sender: FDA-Public Use
  Company Number: US-ELI_LILLY_AND_COMPANY-US201105001495

PATIENT
  Age: 72 Year
  Sex: Female

DRUGS (2)
  1. FORTEO [Suspect]
     Active Substance: TERIPARATIDE
     Dosage: 20 UG, QD
     Dates: end: 2011
  2. FORTEO [Suspect]
     Active Substance: TERIPARATIDE
     Indication: OSTEOPOROSIS
     Dosage: 20 UG, QD
     Dates: start: 20110426

REACTIONS (10)
  - Migraine [Unknown]
  - Muscle atrophy [Unknown]
  - Malaise [Unknown]
  - Pain in extremity [Unknown]
  - Nausea [Unknown]
  - Heart rate decreased [Unknown]
  - Muscular weakness [Recovering/Resolving]
  - Constipation [Unknown]
  - Weight decreased [Unknown]
  - Muscle spasms [Not Recovered/Not Resolved]

NARRATIVE: CASE EVENT DATE: 20110426
